FAERS Safety Report 25989217 (Version 2)
Quarter: 2025Q4

REPORT INFORMATION
  Report Type: Spontaneous
  Country: EU (occurrence: EU)
  Receive Date: 20251103
  Receipt Date: 20251124
  Transmission Date: 20260118
  Serious: Yes (Hospitalization)
  Sender: MYLAN
  Company Number: EU-MYLANLABS-2025M1093330

PATIENT
  Age: 46 Year
  Sex: Male
  Weight: 77.6 kg

DRUGS (4)
  1. ZIPRASIDONE [Suspect]
     Active Substance: ZIPRASIDONE
     Indication: Schizophrenia
     Dosage: 80 MILLIGRAM, BID (TWICE DAILY)
  2. ZIPRASIDONE [Suspect]
     Active Substance: ZIPRASIDONE
     Dosage: 80 MILLIGRAM, BID (TWICE DAILY)
     Route: 065
  3. ZIPRASIDONE [Suspect]
     Active Substance: ZIPRASIDONE
     Dosage: 80 MILLIGRAM, BID (TWICE DAILY)
     Route: 065
  4. ZIPRASIDONE [Suspect]
     Active Substance: ZIPRASIDONE
     Dosage: 80 MILLIGRAM, BID (TWICE DAILY)

REACTIONS (3)
  - Aggression [Unknown]
  - Disease progression [Unknown]
  - Treatment noncompliance [Unknown]

NARRATIVE: CASE EVENT DATE: 20250501
